FAERS Safety Report 23141362 (Version 1)
Quarter: 2023Q4

REPORT INFORMATION
  Report Type: Spontaneous
  Country: US (occurrence: US)
  Receive Date: 20231103
  Receipt Date: 20231103
  Transmission Date: 20240110
  Serious: Yes (Hospitalization)
  Sender: FDA-Public Use
  Company Number: US-GLAXOSMITHKLINE-US2023149291

PATIENT

DRUGS (1)
  1. TRELEGY ELLIPTA [Suspect]
     Active Substance: FLUTICASONE FUROATE\UMECLIDINIUM BROMIDE\VILANTEROL TRIFENATATE
     Indication: Asthma
     Dosage: 200/62.5/25MCG INH 30
     Dates: start: 20211001

REACTIONS (7)
  - Hospitalisation [Not Recovered/Not Resolved]
  - Dehydration [Unknown]
  - Nausea [Unknown]
  - Confusional state [Unknown]
  - Fatigue [Unknown]
  - Irritability [Unknown]
  - Product dose omission issue [Unknown]

NARRATIVE: CASE EVENT DATE: 20231001
